FAERS Safety Report 8585556-X (Version None)
Quarter: 2012Q3

REPORT INFORMATION
  Report Type: 
  Country: None (occurrence: None)
  Receive Date: 20120810
  Receipt Date: 20120802
  Transmission Date: 20120928
  Serious: Yes (Other)
  Sender: FDA-Public Use
  Company Number: CA-JNJFOC-20120803007

PATIENT
  Sex: Male
  Weight: 170 kg

DRUGS (4)
  1. ADALAT [Concomitant]
     Route: 065
     Dates: start: 20000101
  2. REMICADE [Suspect]
     Indication: ANKYLOSING SPONDYLITIS
     Route: 042
     Dates: start: 20101101
  3. INDOMETHACIN [Concomitant]
     Route: 048
     Dates: start: 20100901
  4. TYLENOL [Concomitant]
     Route: 048
     Dates: start: 20100901

REACTIONS (2)
  - DIABETES MELLITUS [None]
  - URINARY TRACT INFECTION [None]
